FAERS Safety Report 25356694 (Version 2)
Quarter: 2025Q2

REPORT INFORMATION
  Report Type: Spontaneous
  Country: US (occurrence: US)
  Receive Date: 20250526
  Receipt Date: 20250605
  Transmission Date: 20250717
  Serious: Yes (Other)
  Sender: CATALYST PHARMA
  Company Number: US-CATALYST PHARMACEUTICALS, INC-US-CATA-25-00741

PATIENT
  Age: 70 Year
  Sex: Male
  Weight: 105.67 kg

DRUGS (25)
  1. FIRDAPSE [Suspect]
     Active Substance: AMIFAMPRIDINE PHOSPHATE
     Indication: Myasthenic syndrome
     Dosage: ONE TABLET THREE TIMES A DAY
     Route: 048
     Dates: start: 20210315
  2. FIRDAPSE [Suspect]
     Active Substance: AMIFAMPRIDINE PHOSPHATE
     Dosage: 7 TABLETS DAILY
     Route: 048
     Dates: start: 20221019
  3. HUMAN IMMUNOGLOBULIN G [Suspect]
     Active Substance: HUMAN IMMUNOGLOBULIN G
     Indication: Product used for unknown indication
     Route: 065
     Dates: start: 20250528
  4. ADVIL [Concomitant]
     Active Substance: IBUPROFEN
     Indication: Pain
     Route: 065
  5. ALBUTEROL SULFATE [Concomitant]
     Active Substance: ALBUTEROL SULFATE
     Indication: Asthma
     Route: 055
  6. ALBUTEROL SULFATE [Concomitant]
     Active Substance: ALBUTEROL SULFATE
     Route: 065
  7. BACLOFEN [Concomitant]
     Active Substance: BACLOFEN
     Indication: Muscle spasms
     Dosage: 10MG THREE TIMES A DAY
     Route: 065
  8. BACLOFEN [Concomitant]
     Active Substance: BACLOFEN
     Indication: Muscle spasms
  9. CLARITIN [Concomitant]
     Active Substance: LORATADINE
     Indication: Hypersensitivity
     Dosage: 10 MG DAILY
     Route: 065
  10. COLCHICINE [Concomitant]
     Active Substance: COLCHICINE
     Indication: Gout
     Dosage: 0.6 MG DAILY
     Route: 065
  11. ELIQUIS [Concomitant]
     Active Substance: APIXABAN
     Indication: Atrial fibrillation
     Dosage: 5 MG TWICE DAILY
     Route: 065
  12. FLONASE [Concomitant]
     Active Substance: FLUTICASONE PROPIONATE
     Indication: Hypersensitivity
     Dosage: 1 SPRAY EACH NOSTRIL DAILY
     Route: 045
  13. FLUTICASONE [Concomitant]
     Active Substance: FLUTICASONE
     Indication: Hypersensitivity
     Dosage: ONE SPRAY DAILY
     Route: 045
  14. LASIX [Concomitant]
     Active Substance: FUROSEMIDE
     Indication: Oedema
     Dosage: 40 MG TWICE DAILY
     Route: 065
  15. GAMMAGARD [Concomitant]
     Active Substance: HUMAN IMMUNOGLOBULIN G
     Indication: Myasthenic syndrome
     Route: 065
  16. GAMMAGARD [Concomitant]
     Active Substance: HUMAN IMMUNOGLOBULIN G
     Route: 042
  17. KEPPRA [Concomitant]
     Active Substance: LEVETIRACETAM
     Indication: Muscle spasms
     Dosage: 500 MG DAILY
     Route: 065
  18. KEPPRA [Concomitant]
     Active Substance: LEVETIRACETAM
     Indication: Muscle spasms
  19. LISINOPRIL [Concomitant]
     Active Substance: LISINOPRIL
     Indication: Hypertension
     Dosage: 10 MG DAILY
     Route: 065
  20. METOPROLOL TARTRATE [Concomitant]
     Active Substance: METOPROLOL TARTRATE
     Indication: Atrial fibrillation
     Dosage: 50 MG TWICE DAILY
     Route: 065
  21. PERCOCET [Concomitant]
     Active Substance: ACETAMINOPHEN\OXYCODONE HYDROCHLORIDE
     Indication: Pain
     Route: 065
  22. PREDNISONE [Concomitant]
     Active Substance: PREDNISONE
     Indication: Asthma
     Dosage: 20 MG DAILY
     Route: 065
  23. SPIRONOLACTONE [Concomitant]
     Active Substance: SPIRONOLACTONE
     Indication: Oedema
     Dosage: 25 MG DAILY
     Route: 065
  24. TRAMADOL [Concomitant]
     Active Substance: TRAMADOL
     Indication: Pain
     Dosage: 50 MG EVERY 6 HOURS
     Route: 065
  25. TYLENOL [Concomitant]
     Active Substance: ACETAMINOPHEN
     Indication: Pain
     Route: 065

REACTIONS (2)
  - Spinal operation [Recovering/Resolving]
  - Pruritus [Unknown]

NARRATIVE: CASE EVENT DATE: 20250429
